FAERS Safety Report 9994348 (Version 1)
Quarter: 2014Q1

REPORT INFORMATION
  Report Type: Spontaneous
  Country: US (occurrence: US)
  Receive Date: 20140311
  Receipt Date: 20140311
  Transmission Date: 20141002
  Serious: No
  Sender: FDA-Public Use
  Company Number: US-GILEAD-2014-0095953

PATIENT
  Age: 51 Year
  Sex: Male

DRUGS (3)
  1. SOVALDI [Suspect]
     Indication: HEPATITIS C
     Dosage: 400 MG, QD
     Route: 065
     Dates: start: 20140221
  2. PEGASYS [Concomitant]
     Dosage: 180 ?G, Q1WK
     Dates: start: 20140221
  3. RIBAPAK [Concomitant]
     Dosage: 1000 MG, QD
     Dates: start: 20140221

REACTIONS (2)
  - Aspartate aminotransferase abnormal [Unknown]
  - Alanine aminotransferase abnormal [Unknown]
